FAERS Safety Report 5431063-2 (Version None)
Quarter: 2007Q3

REPORT INFORMATION
  Report Type: 
  Country: None (occurrence: None)
  Receive Date: 20070830
  Receipt Date: 20070130
  Transmission Date: 20080115
  Serious: No
  Sender: FDA-Public Use
  Company Number: A0637652A

PATIENT
  Age: 58 Year
  Sex: Male

DRUGS (6)
  1. WELLBUTRIN XL [Suspect]
     Indication: DEPRESSION
     Route: 048
  2. WELLBUTRIN [Suspect]
     Indication: DEPRESSION
     Route: 048
  3. MULTIVITAMIN [Concomitant]
  4. CALCIUM [Concomitant]
  5. BLOOD PRESSURE MEDICATION [Concomitant]
  6. VITAMIN D [Concomitant]

REACTIONS (1)
  - OSTEOPOROSIS [None]
